FAERS Safety Report 20220440 (Version 2)
Quarter: 2023Q1

REPORT INFORMATION
  Report Type: Spontaneous
  Country: DE (occurrence: DE)
  Receive Date: 20211223
  Receipt Date: 20230121
  Transmission Date: 20230418
  Serious: Yes (Hospitalization)
  Sender: FDA-Public Use
  Company Number: DE-ADRED-07425-01

PATIENT
  Age: 64 Year
  Sex: Male
  Weight: 92 kg

DRUGS (6)
  1. HYDROCHLOROTHIAZIDE [Suspect]
     Active Substance: HYDROCHLOROTHIAZIDE
     Indication: Product used for unknown indication
     Dosage: 12.5 MILLIGRAM (12.5 MG, 1-0-0-0, TABLETTEN)
     Route: 048
  2. ALLOPURINOL [Concomitant]
     Active Substance: ALLOPURINOL
     Indication: Product used for unknown indication
     Dosage: 100 MILLIGRAM (100 MG, 0-0-1-0, TABLETTEN)
     Route: 048
  3. CANDESARTAN [Concomitant]
     Active Substance: CANDESARTAN
     Indication: Product used for unknown indication
     Dosage: 16 MILLIGRAM (16 MG, 2-0-0-0, TABLETTEN)
     Route: 048
  4. PANTOPRAZOLE SODIUM [Concomitant]
     Active Substance: PANTOPRAZOLE SODIUM
     Indication: Product used for unknown indication
     Dosage: 40 MILLIGRAM (40 MG, 1-0-0-0, RETARD-TABLETTEN)
     Route: 048
  5. TAMSULOSIN [Concomitant]
     Active Substance: TAMSULOSIN
     Indication: Product used for unknown indication
     Dosage: 0.4 MILLIGRAM (0.4 MG, 1-0-0-0, RETARD-TABLETTEN)
     Route: 048
  6. URSODIOL [Concomitant]
     Active Substance: URSODIOL
     Indication: Product used for unknown indication
     Dosage: 150 MILLIGRAM (150 MG, 1-0-0-0, TABLETTEN
     Route: 048

REACTIONS (3)
  - Abdominal pain upper [Unknown]
  - Pain [Unknown]
  - Product administration error [Unknown]

NARRATIVE: CASE EVENT DATE: 20210409
